FAERS Safety Report 8036619-9 (Version None)
Quarter: 2012Q1

REPORT INFORMATION
  Report Type: 
  Country: None (occurrence: None)
  Receive Date: 20120111
  Receipt Date: 20120106
  Transmission Date: 20120608
  Serious: Yes (Hospitalization)
  Sender: FDA-Public Use
  Company Number: PHHO2011GB14261

PATIENT
  Sex: Female
  Weight: 85.7 kg

DRUGS (2)
  1. LETROZOLE [Suspect]
     Indication: BREAST CANCER
     Dosage: 2.5 MG, QD
     Route: 048
     Dates: start: 20070817
  2. GLUCOSAMINE [Concomitant]
     Indication: ARTHRALGIA
     Dosage: 1000 MG, QD
     Route: 048
     Dates: start: 20090701

REACTIONS (2)
  - JOINT INJURY [None]
  - CONCOMITANT DISEASE PROGRESSION [None]
